FAERS Safety Report 22284019 (Version 4)
Quarter: 2024Q1

REPORT INFORMATION
  Report Type: Other
  Country: CA (occurrence: CA)
  Receive Date: 20230504
  Receipt Date: 20240209
  Transmission Date: 20240410
  Serious: Yes (Death, Life-Threatening, Hospitalization, Other)
  Sender: FDA-Public Use
  Company Number: None

PATIENT
  Age: 59 Year
  Sex: Female
  Weight: 54 kg

DRUGS (12)
  1. MORPHINE SULFATE [Suspect]
     Active Substance: MORPHINE SULFATE
     Indication: Cancer pain
     Dosage: 20 MILLIGRAM
     Route: 058
  2. MORPHINE SULFATE [Suspect]
     Active Substance: MORPHINE SULFATE
     Indication: Breast cancer metastatic
     Dosage: UNK
     Route: 058
  3. DEXAMETHASONE [Suspect]
     Active Substance: DEXAMETHASONE
     Indication: Cancer pain
     Dosage: 4.0 MILLIGRAM, Q8H
     Route: 065
  4. DEXAMETHASONE [Suspect]
     Active Substance: DEXAMETHASONE
     Indication: Breast cancer metastatic
  5. DIAZEPAM [Suspect]
     Active Substance: DIAZEPAM
     Indication: Cancer pain
     Dosage: 5.0 MILLIGRAM 1 EVERY 8 HOURS
     Route: 065
  6. DIAZEPAM [Suspect]
     Active Substance: DIAZEPAM
     Indication: Breast cancer metastatic
     Dosage: 5 MILLIGRAM
     Route: 065
  7. GABAPENTIN [Suspect]
     Active Substance: GABAPENTIN
     Indication: Cancer pain
     Dosage: 900.0 MILLIGRAM, Q12H
     Route: 065
  8. GABAPENTIN [Suspect]
     Active Substance: GABAPENTIN
     Indication: Breast cancer metastatic
     Dosage: 300 MILLIGRAM
     Route: 065
  9. METHADOSE SUGAR-FREE [Suspect]
     Active Substance: METHADONE HYDROCHLORIDE
     Indication: Cancer pain
     Dosage: 10 MILLIGRAM, Q12H
     Route: 065
  10. METHADOSE SUGAR-FREE [Suspect]
     Active Substance: METHADONE HYDROCHLORIDE
     Indication: Breast cancer metastatic
     Dosage: 5 MILLIGRAM
     Route: 065
  11. METHADOSE SUGAR-FREE [Suspect]
     Active Substance: METHADONE HYDROCHLORIDE
     Dosage: 15 MILLIGRAM,3 EVERY 1 DAYS
     Route: 065
  12. METHADOSE SUGAR-FREE [Suspect]
     Active Substance: METHADONE HYDROCHLORIDE
     Dosage: 15 MILLIGRAM, 1 EVERY 8 HOURS
     Route: 065

REACTIONS (7)
  - Phyllodes tumour [Fatal]
  - Disease progression [Fatal]
  - Musculoskeletal chest pain [Fatal]
  - Off label use [Fatal]
  - Drug ineffective for unapproved indication [Fatal]
  - Therapy non-responder [Unknown]
  - Drug ineffective [Unknown]
